FAERS Safety Report 13514706 (Version 4)
Quarter: 2017Q3

REPORT INFORMATION
  Report Type: Spontaneous
  Country: US (occurrence: US)
  Receive Date: 20170504
  Receipt Date: 20170728
  Transmission Date: 20171127
  Serious: Yes (Hospitalization)
  Sender: FDA-Public Use
  Company Number: US-JNJFOC-20170428011

PATIENT
  Age: 56 Year
  Sex: Female

DRUGS (11)
  1. MOBIC [Concomitant]
     Active Substance: MELOXICAM
     Route: 065
  2. CALCIPOTRIENE. [Concomitant]
     Active Substance: CALCIPOTRIENE
     Route: 065
  3. VITAMIN B COMPLEX [Concomitant]
     Active Substance: CYANOCOBALAMIN\DEXPANTHENOL\NIACINAMIDE\PYRIDOXINE HYDROCHLORIDE\RIBOFLAVIN 5^-PHOSPHATE SODIUM\THIAMINE HYDROCHLORIDE\VITAMIN B COMPLEX
     Route: 065
  4. JUBLIA [Concomitant]
     Active Substance: EFINACONAZOLE
     Route: 065
  5. DESOXIMETASONE. [Concomitant]
     Active Substance: DESOXIMETASONE
     Route: 065
  6. SCOPOLAMINE [Concomitant]
     Active Substance: SCOPOLAMINE
     Route: 065
  7. CALCITRENE [Concomitant]
     Active Substance: CALCIPOTRIENE
     Route: 065
  8. DESOXIMETASONE. [Concomitant]
     Active Substance: DESOXIMETASONE
     Route: 065
  9. VITAMINA B12 [Concomitant]
     Route: 065
  10. STELARA [Suspect]
     Active Substance: USTEKINUMAB
     Indication: PSORIASIS
     Route: 058
     Dates: start: 20150327
  11. STELARA [Suspect]
     Active Substance: USTEKINUMAB
     Indication: PSORIASIS
     Route: 058
     Dates: start: 20170417

REACTIONS (1)
  - Paralysis [Unknown]

NARRATIVE: CASE EVENT DATE: 20170426
